FAERS Safety Report 8558653 (Version 4)
Quarter: 2012Q4

REPORT INFORMATION
  Report Type: 
  Country: US (occurrence: US)
  Receive Date: 20120511
  Receipt Date: 20121102
  Transmission Date: 20130627
  Serious: Yes (Other)
  Sender: FDA-Public Use
  Company Number: US-JNJFOC-20120401247

PATIENT
  Sex: Female

DRUGS (5)
  1. REMICADE [Suspect]
     Indication: PRODUCT USED FOR UNKNOWN INDICATION
     Route: 042
     Dates: end: 20091229
  2. CYMBALTA [Concomitant]
     Indication: DEPRESSION
     Route: 065
  3. XOPENEX [Concomitant]
     Indication: ASTHMA
     Route: 065
     Dates: start: 1990
  4. LORAZEPAM [Concomitant]
     Indication: ANXIETY
     Route: 065
     Dates: start: 1990
  5. SEROQUEL [Concomitant]
     Indication: SLEEP DISORDER
     Route: 065
     Dates: start: 2000

REACTIONS (14)
  - Rheumatoid arthritis [Not Recovered/Not Resolved]
  - Psoriatic arthropathy [Not Recovered/Not Resolved]
  - Ear infection [Not Recovered/Not Resolved]
  - Sinusitis [Not Recovered/Not Resolved]
  - Hand dermatitis [Not Recovered/Not Resolved]
  - Staphylococcal infection [Recovered/Resolved]
  - Leukocytosis [Unknown]
  - Psoriasis [Unknown]
  - Antiphospholipid antibodies [Not Recovered/Not Resolved]
  - Rash generalised [Not Recovered/Not Resolved]
  - Pain [Not Recovered/Not Resolved]
  - Eczema [Not Recovered/Not Resolved]
  - Onychomadesis [Not Recovered/Not Resolved]
  - Alopecia [Not Recovered/Not Resolved]
